FAERS Safety Report 22053621 (Version 1)
Quarter: 2023Q1

REPORT INFORMATION
  Report Type: Spontaneous
  Country: US (occurrence: None)
  Receive Date: 20230301
  Receipt Date: 20230301
  Transmission Date: 20230418
  Serious: No
  Sender: FDA-Public Use
  Company Number: None

PATIENT
  Age: 65 Year
  Sex: Female
  Weight: 63 kg

DRUGS (11)
  1. ELIQUIS [Suspect]
     Active Substance: APIXABAN
     Indication: Atrial fibrillation
     Dosage: FREQUENCY : EVERY 12 HOURS;?
     Route: 048
     Dates: start: 20230224
  2. carvidelol [Concomitant]
  3. HYDROCHLOROTHIAZIDE [Concomitant]
     Active Substance: HYDROCHLOROTHIAZIDE
  4. LEVOTHYROXINE [Concomitant]
     Active Substance: LEVOTHYROXINE
  5. ELIQUIS [Concomitant]
     Active Substance: APIXABAN
  6. Azelastine nasal spray and eye drops [Concomitant]
  7. VITAMINS [Concomitant]
     Active Substance: VITAMINS
  8. FISH OIL [Concomitant]
     Active Substance: FISH OIL
  9. GAVISCON [Concomitant]
     Active Substance: ALUMINUM HYDROXIDE\MAGNESIUM CARBONATE
  10. FLONASE [Concomitant]
     Active Substance: FLUTICASONE PROPIONATE
  11. ZYRTEC [Concomitant]
     Active Substance: CETIRIZINE HYDROCHLORIDE

REACTIONS (2)
  - Headache [None]
  - Tinnitus [None]

NARRATIVE: CASE EVENT DATE: 20230224
